FAERS Safety Report 9238550 (Version 2)
Quarter: 2014Q1

REPORT INFORMATION
  Report Type: Report from Study
  Country: CN (occurrence: CN)
  Receive Date: 20130418
  Receipt Date: 20140203
  Transmission Date: 20141002
  Serious: Yes (Hospitalization)
  Sender: FDA-Public Use
  Company Number: CN-ASTELLAS-2013US003989

PATIENT
  Age: 65 Year
  Sex: Male

DRUGS (2)
  1. ERLOTINIB TABLET [Suspect]
     Indication: SQUAMOUS CELL CARCINOMA OF LUNG
     Dosage: 150 MG, UID/QD
     Route: 048
     Dates: start: 20130127
  2. ERLOTINIB TABLET [Suspect]
     Indication: NON-SMALL CELL LUNG CANCER

REACTIONS (9)
  - Pulmonary hilar enlargement [Unknown]
  - Rash [Recovered/Resolved]
  - Skin fissures [Recovered/Resolved]
  - Infection [Recovered/Resolved]
  - Cough [Unknown]
  - Poor quality sleep [Recovered/Resolved]
  - Cerebrovascular insufficiency [Recovering/Resolving]
  - Respiratory rate increased [Unknown]
  - Heart rate increased [Unknown]
